FAERS Safety Report 7797686-0 (Version None)
Quarter: 2011Q4

REPORT INFORMATION
  Report Type: 
  Country: None (occurrence: None)
  Receive Date: 20111005
  Receipt Date: 20110925
  Transmission Date: 20120403
  Serious: Yes (Other)
  Sender: FDA-Public Use
  Company Number: PHHY2011TH85252

PATIENT
  Sex: Male

DRUGS (2)
  1. CHEMOTHERAPEUTICS NOS [Concomitant]
  2. GLEEVEC [Suspect]
     Indication: CHRONIC MYELOID LEUKAEMIA
     Dosage: 200 MG
     Route: 048

REACTIONS (1)
  - ACUTE LYMPHOCYTIC LEUKAEMIA [None]
